FAERS Safety Report 22648368 (Version 5)
Quarter: 2023Q4

REPORT INFORMATION
  Report Type: Spontaneous
  Country: US (occurrence: US)
  Receive Date: 20230628
  Receipt Date: 20231226
  Transmission Date: 20240110
  Serious: Yes (Hospitalization, Other)
  Sender: FDA-Public Use
  Company Number: US-UNITED THERAPEUTICS-UNT-2023-017642

PATIENT
  Age: 21 Year
  Sex: Female

DRUGS (9)
  1. REMODULIN [Suspect]
     Active Substance: TREPROSTINIL
     Indication: Product used for unknown indication
     Dosage: UNK, CONTINUING
     Route: 058
  2. AMBRISENTAN [Suspect]
     Active Substance: AMBRISENTAN
     Indication: Pulmonary arterial hypertension
     Dosage: 10 MG, QD
     Route: 065
     Dates: start: 201911
  3. AMBRISENTAN [Suspect]
     Active Substance: AMBRISENTAN
     Dosage: 10 MG, QD
     Route: 065
     Dates: start: 202305
  4. VELETRI [Suspect]
     Active Substance: EPOPROSTENOL
     Indication: Pulmonary arterial hypertension
     Dosage: 34 ML, QD
     Route: 065
     Dates: start: 202306
  5. VELETRI [Suspect]
     Active Substance: EPOPROSTENOL
     Dosage: 40 ML, QD
     Route: 065
     Dates: start: 202306
  6. VELETRI [Suspect]
     Active Substance: EPOPROSTENOL
     Dosage: 40 NG
     Route: 065
     Dates: start: 202306
  7. VELETRI [Suspect]
     Active Substance: EPOPROSTENOL
     Dosage: 50 ML, QD
     Route: 065
     Dates: start: 202310
  8. CHLORAPREP [Suspect]
     Active Substance: CHLORHEXIDINE GLUCONATE\ISOPROPYL ALCOHOL
     Indication: Product used for unknown indication
     Dosage: UNK
     Route: 065
  9. ADCIRCA [Concomitant]
     Active Substance: TADALAFIL
     Indication: Product used for unknown indication
     Dosage: UNK
     Route: 065
     Dates: start: 202103

REACTIONS (8)
  - Device related infection [Not Recovered/Not Resolved]
  - Chest pain [Not Recovered/Not Resolved]
  - Sepsis [Not Recovered/Not Resolved]
  - Diarrhoea [Not Recovered/Not Resolved]
  - Injection site pruritus [Unknown]
  - Tonsillar hypertrophy [Unknown]
  - Dermatitis contact [Not Recovered/Not Resolved]
  - Drug hypersensitivity [Not Recovered/Not Resolved]
